FAERS Safety Report 6386919-3 (Version None)
Quarter: 2009Q4

REPORT INFORMATION
  Report Type: 
  Country: None (occurrence: None)
  Receive Date: 20091002
  Receipt Date: 20090925
  Transmission Date: 20100525
  Serious: No
  Sender: FDA-Public Use
  Company Number: B0595587A

PATIENT
  Age: 12 Year
  Sex: Male

DRUGS (4)
  1. RELENZA [Suspect]
     Indication: INFLUENZA
     Dosage: 35MG PER DAY
     Route: 055
     Dates: start: 20090925, end: 20090925
  2. RELENZA [Suspect]
     Dosage: 10MG PER DAY
     Route: 055
     Dates: start: 20090926
  3. TEGRETOL [Concomitant]
     Route: 048
  4. CALONAL [Concomitant]
     Route: 048

REACTIONS (1)
  - OVERDOSE [None]
